FAERS Safety Report 23781899 (Version 1)
Quarter: 2024Q2

REPORT INFORMATION
  Report Type: Spontaneous
  Country: DE (occurrence: DE)
  Receive Date: 20240425
  Receipt Date: 20240425
  Transmission Date: 20240715
  Serious: Yes (Hospitalization, Other)
  Sender: FDA-Public Use
  Company Number: DE-SANOFI-02021529

PATIENT
  Age: 86 Year
  Sex: Female

DRUGS (2)
  1. ZOLPIDEM TARTRATE [Suspect]
     Active Substance: ZOLPIDEM TARTRATE
     Dosage: UNKNOWN DOSE
  2. ZOLPIDEM TARTRATE [Suspect]
     Active Substance: ZOLPIDEM TARTRATE
     Dosage: 1.5-2 TABLETS, HALF A TABLET IN THE MORNING

REACTIONS (5)
  - Cerebrovascular accident [Unknown]
  - Drug dependence [Unknown]
  - Intentional product misuse [Unknown]
  - Inappropriate schedule of product discontinuation [Unknown]
  - Therapeutic response decreased [Unknown]
